FAERS Safety Report 9559263 (Version 1)
Quarter: 2013Q3

REPORT INFORMATION
  Report Type: Spontaneous
  Country: US (occurrence: None)
  Receive Date: 20130924
  Receipt Date: 20130924
  Transmission Date: 20140515
  Serious: Yes (Hospitalization)
  Sender: FDA-Public Use
  Company Number: ADR-2013-01684

PATIENT
  Sex: 0

DRUGS (1)
  1. BACLOFEN [Suspect]
     Dosage: 300

REACTIONS (4)
  - Urticaria [None]
  - Pruritus [None]
  - Skin candida [None]
  - Drug withdrawal syndrome [None]
